FAERS Safety Report 24163336 (Version 1)
Quarter: 2024Q3

REPORT INFORMATION
  Report Type: Spontaneous
  Country: US (occurrence: US)
  Receive Date: 20240801
  Receipt Date: 20240801
  Transmission Date: 20241017
  Serious: Yes (Hospitalization, Other)
  Sender: GLAXOSMITHKLINE
  Company Number: US-GLAXOSMITHKLINE-US2024092266

PATIENT

DRUGS (1)
  1. TRELEGY ELLIPTA [Suspect]
     Active Substance: FLUTICASONE FUROATE\UMECLIDINIUM BROMIDE\VILANTEROL TRIFENATATE
     Indication: Chronic obstructive pulmonary disease
     Dosage: UNK UNK, QD, 100/62.5/25MCG INH 30

REACTIONS (5)
  - Abdominal operation [Unknown]
  - Cystitis [Not Recovered/Not Resolved]
  - Hypoacusis [Unknown]
  - Post procedural complication [Unknown]
  - Obstruction [Unknown]

NARRATIVE: CASE EVENT DATE: 20240419
